FAERS Safety Report 9527038 (Version 2)
Quarter: 2014Q1

REPORT INFORMATION
  Report Type: Spontaneous
  Country: US (occurrence: US)
  Receive Date: 20130916
  Receipt Date: 20140123
  Transmission Date: 20141002
  Serious: Yes (Death, Other)
  Sender: FDA-Public Use
  Company Number: US-PFIZER INC-2013263668

PATIENT
  Age: 56 Year
  Sex: Male

DRUGS (3)
  1. REVATIO [Suspect]
     Indication: PULMONARY HYPERTENSION
     Dosage: 60 MG, 3X/DAY
     Dates: start: 20120424
  2. HEPARIN SODIUM [Suspect]
  3. ARGATROBAN [Suspect]

REACTIONS (4)
  - Cardiac failure [Fatal]
  - Haemorrhage [Fatal]
  - Post procedural complication [Fatal]
  - Heparin-induced thrombocytopenia [Unknown]
